FAERS Safety Report 6427072-7 (Version None)
Quarter: 2009Q4

REPORT INFORMATION
  Report Type: 
  Country: None (occurrence: None)
  Receive Date: 20091104
  Receipt Date: 20091021
  Transmission Date: 20100525
  Serious: Yes (Death)
  Sender: FDA-Public Use
  Company Number: AT-PURDUE-DEU-2009-0005356

PATIENT
  Age: 31 Year
  Sex: Male

DRUGS (3)
  1. MORPHINE [Suspect]
     Indication: DRUG ABUSE
     Route: 042
  2. OXAZEPAM [Suspect]
     Indication: DRUG ABUSE
     Route: 065
  3. METHADONE [Suspect]
     Indication: DRUG ABUSE
     Route: 065

REACTIONS (7)
  - ASPIRATION [None]
  - BRAIN OEDEMA [None]
  - CARDIAC ARREST [None]
  - DRUG ABUSE [None]
  - MULTIPLE DRUG OVERDOSE [None]
  - OEDEMA [None]
  - PULMONARY OEDEMA [None]
